FAERS Safety Report 5644434-6 (Version None)
Quarter: 2008Q1

REPORT INFORMATION
  Report Type: 
  Country: None (occurrence: None)
  Receive Date: 20080229
  Receipt Date: 20080219
  Transmission Date: 20080703
  Serious: Yes (Other)
  Sender: FDA-Public Use
  Company Number: US-AMGEN-US261699

PATIENT
  Sex: Female

DRUGS (12)
  1. ENBREL [Suspect]
     Indication: RHEUMATOID ARTHRITIS
     Route: 058
     Dates: start: 20030115, end: 20080115
  2. FOSAMAX [Concomitant]
     Route: 065
  3. METHOTREXATE [Concomitant]
     Route: 048
  4. PREVACID [Concomitant]
     Route: 048
  5. CRESTOR [Concomitant]
     Route: 065
  6. MEDROL [Concomitant]
     Route: 048
  7. FOLATE SODIUM [Concomitant]
     Route: 048
  8. METOPROLOL TARTRATE [Concomitant]
     Route: 048
  9. ISOSORBIDE DINITRATE [Concomitant]
     Route: 048
  10. PAXIL [Concomitant]
     Route: 048
  11. PREDNISONE TAB [Concomitant]
     Route: 065
  12. INDOCIN [Concomitant]
     Route: 065

REACTIONS (1)
  - SCLERITIS [None]
